FAERS Safety Report 21545689 (Version 1)
Quarter: 2022Q4

REPORT INFORMATION
  Report Type: Spontaneous
  Country: JP (occurrence: JP)
  Receive Date: 20221103
  Receipt Date: 20221103
  Transmission Date: 20230113
  Serious: Yes (Other)
  Sender: FDA-Public Use
  Company Number: JP-KYOWAKIRIN-2022AKK016775

PATIENT
  Age: 62 Year
  Sex: Male

DRUGS (3)
  1. PEGFILGRASTIM [Suspect]
     Active Substance: PEGFILGRASTIM
     Indication: Peripheral blood stem cell apheresis
     Dosage: UNK
     Route: 065
  2. CYCLOPHOSPHAMIDE [Suspect]
     Active Substance: CYCLOPHOSPHAMIDE
     Indication: Peripheral blood stem cell apheresis
     Dosage: UNK
     Route: 065
  3. PLERIXAFOR [Suspect]
     Active Substance: PLERIXAFOR
     Indication: Peripheral blood stem cell apheresis
     Dosage: UNK
     Route: 065

REACTIONS (4)
  - Legionella infection [Recovered/Resolved]
  - Fungal infection [Recovered/Resolved]
  - Varicella zoster virus infection [Recovered/Resolved]
  - COVID-19 [Recovered/Resolved]
